FAERS Safety Report 5659247-9 (Version None)
Quarter: 2008Q1

REPORT INFORMATION
  Report Type: 
  Country: None (occurrence: None)
  Receive Date: 20080311
  Receipt Date: 20070614
  Transmission Date: 20080703
  Serious: No
  Sender: FDA-Public Use
  Company Number: US-BAYER-200711909BCC

PATIENT
  Age: 66 Year
  Sex: Female
  Weight: 109 kg

DRUGS (8)
  1. ALEVE [Suspect]
     Indication: ARTHRITIS
     Dosage: TOTAL DAILY DOSE: 440 MG  UNIT DOSE: 220 MG
     Route: 048
     Dates: start: 20070528
  2. METFORMIN HCL [Concomitant]
  3. LISINOPRIL [Concomitant]
  4. NORVASC [Concomitant]
  5. HYDROCHLOROTHIAZIDE [Concomitant]
  6. PLAVIX [Concomitant]
  7. ZETIA [Concomitant]
  8. NITROGLYCERIN [Concomitant]
     Route: 062

REACTIONS (1)
  - ARTHRITIS [None]
